FAERS Safety Report 7207731-9 (Version None)
Quarter: 2011Q1

REPORT INFORMATION
  Report Type: 
  Country: None (occurrence: None)
  Receive Date: 20110103
  Receipt Date: 20101229
  Transmission Date: 20110831
  Serious: Yes (Death)
  Sender: FDA-Public Use
  Company Number: US-JNJFOC-20101209028

PATIENT
  Sex: Female
  Weight: 74.84 kg

DRUGS (2)
  1. TRAMADOL [Suspect]
     Indication: INTERVERTEBRAL DISC PROTRUSION
     Route: 048
  2. ULTRACET [Suspect]
     Indication: INTERVERTEBRAL DISC PROTRUSION
     Route: 048

REACTIONS (8)
  - SOMNOLENCE [None]
  - NAUSEA [None]
  - CONSTIPATION [None]
  - HAEMORRHOIDS [None]
  - INCORRECT DRUG ADMINISTRATION DURATION [None]
  - CARDIAC FAILURE CONGESTIVE [None]
  - VOMITING [None]
  - DIZZINESS [None]
